FAERS Safety Report 18251487 (Version 1)
Quarter: 2020Q3

REPORT INFORMATION
  Report Type: Spontaneous
  Country: HR (occurrence: HR)
  Receive Date: 20200910
  Receipt Date: 20200910
  Transmission Date: 20201103
  Serious: Yes (Other)
  Sender: FDA-Public Use
  Company Number: HR-GLAXOSMITHKLINE-HR2020GSK181516

PATIENT
  Age: 15 Day
  Sex: Female
  Weight: 4 kg

DRUGS (1)
  1. SALBUTAMOL [Suspect]
     Active Substance: ALBUTEROL
     Indication: PRODUCT USED FOR UNKNOWN INDICATION
     Dosage: UNK UNK, 1D (10 DROPS (10 GTT,1 D))
     Route: 048
     Dates: start: 20200727, end: 20200727

REACTIONS (6)
  - Wrong product administered [Unknown]
  - Accidental overdose [Unknown]
  - Incorrect route of product administration [Unknown]
  - Tachycardia [Unknown]
  - Tremor [Unknown]
  - Diarrhoea [Unknown]

NARRATIVE: CASE EVENT DATE: 20200727
